FAERS Safety Report 19817473 (Version 2)
Quarter: 2021Q3

REPORT INFORMATION
  Report Type: Spontaneous
  Country: CO (occurrence: CO)
  Receive Date: 20210910
  Receipt Date: 20210921
  Transmission Date: 20211014
  Serious: Yes (Hospitalization, Other)
  Sender: FDA-Public Use
  Company Number: CO-BIOMARINAP-CO-2021-138496

PATIENT
  Age: 13 Year
  Sex: Female

DRUGS (3)
  1. ACETAMINOPHENE [Concomitant]
     Active Substance: ACETAMINOPHEN
     Indication: PREMEDICATION
  2. LORATADINE. [Concomitant]
     Active Substance: LORATADINE
     Indication: PREMEDICATION
  3. VIMIZIM [Suspect]
     Active Substance: ELOSULFASE ALFA
     Indication: MUCOPOLYSACCHARIDOSIS IV
     Dosage: 40 MILLIGRAM, QW
     Route: 042
     Dates: start: 20160115

REACTIONS (13)
  - Cardiac arrest [Not Recovered/Not Resolved]
  - Walking disability [Not Recovered/Not Resolved]
  - Pain in extremity [Not Recovered/Not Resolved]
  - Hypertonia [Not Recovered/Not Resolved]
  - Hyperreflexia [Not Recovered/Not Resolved]
  - Hoffmann^s sign [Not Recovered/Not Resolved]
  - Spinal cord compression [Not Recovered/Not Resolved]
  - Gait disturbance [Not Recovered/Not Resolved]
  - Paraplegia [Not Recovered/Not Resolved]
  - Hemiparesis [Not Recovered/Not Resolved]
  - Paraparesis [Not Recovered/Not Resolved]
  - Clumsiness [Not Recovered/Not Resolved]
  - Clonus [Not Recovered/Not Resolved]

NARRATIVE: CASE EVENT DATE: 2018
